FAERS Safety Report 6079333-1 (Version None)
Quarter: 2009Q1

REPORT INFORMATION
  Report Type: 
  Country: None (occurrence: None)
  Receive Date: 20090216
  Receipt Date: 20090206
  Transmission Date: 20090719
  Serious: Yes (Hospitalization)
  Sender: FDA-Public Use
  Company Number: PHHO2009BR01969

PATIENT
  Sex: Male
  Weight: 62.5 kg

DRUGS (1)
  1. TASIGNA [Suspect]
     Indication: CHRONIC MYELOID LEUKAEMIA
     Dosage: 800 MG DAILY
     Route: 048

REACTIONS (4)
  - NAUSEA [None]
  - NEUTROPENIA [None]
  - PYREXIA [None]
  - SINUSITIS [None]
